FAERS Safety Report 5825410-7 (Version None)
Quarter: 2008Q3

REPORT INFORMATION
  Report Type: 
  Country: None (occurrence: None)
  Receive Date: 20080725
  Receipt Date: 20080725
  Transmission Date: 20090109
  Serious: Yes (Hospitalization)
  Sender: FDA-Public Use
  Company Number: None

PATIENT
  Age: 56 Year
  Sex: Female
  Weight: 65.318 kg

DRUGS (1)
  1. AMITRIPTLINE HYDROCHLORIDE TAB [Suspect]
     Indication: RESTLESS LEGS SYNDROME
     Dosage: ONE TABLET AT BEDTIME PO
     Route: 048
     Dates: start: 20080721, end: 20080721

REACTIONS (2)
  - DRUG INEFFECTIVE [None]
  - DYSTONIA [None]
